FAERS Safety Report 10682557 (Version 1)
Quarter: 2014Q4

REPORT INFORMATION
  Report Type: Spontaneous
  Country: US (occurrence: None)
  Receive Date: 20141229
  Receipt Date: 20141229
  Transmission Date: 20150529
  Serious: Yes (Life-Threatening, Other)
  Sender: FDA-Public Use
  Company Number: None

PATIENT
  Age: 42 Year
  Sex: Female
  Weight: 65.77 kg

DRUGS (2)
  1. BUSPAR [Suspect]
     Active Substance: BUSPIRONE HYDROCHLORIDE
     Indication: ANXIETY
     Dosage: 1 TABLET
     Route: 048
     Dates: start: 20141020, end: 20141223
  2. CYMBALTA [Suspect]
     Active Substance: DULOXETINE HYDROCHLORIDE
     Indication: ANXIETY
     Dosage: 1 CAPSULE
     Route: 048
     Dates: start: 20141020, end: 20141223

REACTIONS (7)
  - Hyperhidrosis [None]
  - Palpitations [None]
  - Skin burning sensation [None]
  - Vomiting [None]
  - Mydriasis [None]
  - Weight decreased [None]
  - Serotonin syndrome [None]
